FAERS Safety Report 8980992 (Version 2)
Quarter: 2012Q4

REPORT INFORMATION
  Report Type: Report from Study
  Country: BR (occurrence: BR)
  Receive Date: 20121221
  Receipt Date: 20121227
  Transmission Date: 20130627
  Serious: Yes (Other)
  Sender: FDA-Public Use
  Company Number: BR-PFIZER INC-2012319555

PATIENT
  Age: 80 Year
  Sex: Female

DRUGS (1)
  1. TALIGLUCERASE ALFA [Suspect]
     Dosage: UNK
     Dates: start: 2010

REACTIONS (4)
  - Pruritus [Unknown]
  - Cerebrovascular accident [Unknown]
  - Senile dementia [Unknown]
  - Disorientation [Unknown]
